FAERS Safety Report 20302168 (Version 4)
Quarter: 2022Q3

REPORT INFORMATION
  Report Type: Report from Study
  Country: US (occurrence: US)
  Receive Date: 20220106
  Receipt Date: 20220809
  Transmission Date: 20221027
  Serious: No
  Sender: FDA-Public Use
  Company Number: US-NOVARTISTESTPH-NVSC2022US001624

PATIENT
  Sex: Male

DRUGS (4)
  1. ENTRESTO [Suspect]
     Active Substance: SACUBITRIL\VALSARTAN
     Indication: Product used for unknown indication
     Dosage: UNK UNK, BID
     Route: 048
     Dates: start: 202112
  2. ENTRESTO [Suspect]
     Active Substance: SACUBITRIL\VALSARTAN
     Dosage: 24/26 MG (24.3 MG SACUBITRIL AND 25.7 MG VALSARTAN)
     Route: 065
  3. ENTRESTO [Suspect]
     Active Substance: SACUBITRIL\VALSARTAN
     Dosage: 49/51 MG,  BID, (48.6 MG SACUBITRIL AND 51.4 MG VALSARTAN)(HCP INCREASED DOSE FROM 24/26 TO 49/51)
     Route: 048
  4. METOPROLOL [Suspect]
     Active Substance: METOPROLOL
     Indication: Product used for unknown indication
     Dosage: UNK (CUT IN HALF)
     Route: 065

REACTIONS (7)
  - Electric shock sensation [Unknown]
  - Fluid retention [Unknown]
  - Weight decreased [Unknown]
  - Overweight [Unknown]
  - Wrong technique in product usage process [Unknown]
  - Hypertension [Unknown]
  - Sunburn [Unknown]
